FAERS Safety Report 6155990-6 (Version None)
Quarter: 2009Q2

REPORT INFORMATION
  Report Type: 
  Country: None (occurrence: None)
  Receive Date: 20090410
  Receipt Date: 20090410
  Transmission Date: 20091009
  Serious: Yes (Hospitalization)
  Sender: FDA-Public Use
  Company Number: None

PATIENT
  Sex: Female
  Weight: 52 kg

DRUGS (1)
  1. PIPERACILLIN AND TAZOBACTAM [Suspect]
     Indication: UROSEPSIS
     Dosage: 2.25GM Q8HR IV
     Route: 042
     Dates: start: 20090126, end: 20090204

REACTIONS (1)
  - HAEMOLYTIC ANAEMIA [None]
